FAERS Safety Report 21234135 (Version 2)
Quarter: 2022Q3

REPORT INFORMATION
  Report Type: Report from Study
  Country: US (occurrence: None)
  Receive Date: 20220819
  Receipt Date: 20220826
  Transmission Date: 20221027
  Serious: Yes (Hospitalization)
  Sender: FDA-Public Use
  Company Number: US-Eisai Medical Research-EC-2022-119859

PATIENT
  Age: 84 Year
  Sex: Female

DRUGS (4)
  1. LENVIMA [Suspect]
     Active Substance: LENVATINIB
     Indication: Ovarian cancer
     Route: 048
     Dates: start: 20220711, end: 20220809
  2. LENVIMA [Suspect]
     Active Substance: LENVATINIB
     Indication: Uterine cancer
  3. KEYTRUDA [Suspect]
     Active Substance: PEMBROLIZUMAB
     Indication: Ovarian cancer
     Dosage: DOSE AND FREQUENCY UNKNOWN
  4. KEYTRUDA [Suspect]
     Active Substance: PEMBROLIZUMAB
     Indication: Uterine cancer

REACTIONS (10)
  - Blood sodium decreased [Unknown]
  - Hypertension [Unknown]
  - Stomatitis [Unknown]
  - Urinary tract infection [Unknown]
  - Dry eye [Unknown]
  - Rash pruritic [Unknown]
  - Cough [Unknown]
  - Insomnia [Recovering/Resolving]
  - Fatigue [Unknown]
  - Nocturia [Unknown]

NARRATIVE: CASE EVENT DATE: 20220101
